FAERS Safety Report 10347423 (Version 2)
Quarter: 2014Q3

REPORT INFORMATION
  Report Type: Spontaneous
  Country: JP (occurrence: JP)
  Receive Date: 20140729
  Receipt Date: 20140729
  Transmission Date: 20150326
  Serious: Yes (Hospitalization)
  Sender: FDA-Public Use
  Company Number: JP-PFIZER INC-2014201550

PATIENT
  Age: 74 Year
  Sex: Female

DRUGS (2)
  1. LYRICA [Suspect]
     Active Substance: PREGABALIN
     Dosage: UNK
     Route: 048
  2. VIVIANT [Suspect]
     Active Substance: BAZEDOXIFENE
     Indication: OSTEOPOROSIS POSTMENOPAUSAL
     Dosage: 20 MG, DAILY
     Route: 048

REACTIONS (1)
  - Lumbar spinal stenosis [Unknown]
